FAERS Safety Report 12395974 (Version 1)
Quarter: 2016Q2

REPORT INFORMATION
  Report Type: Spontaneous
  Country: US (occurrence: US)
  Receive Date: 20160523
  Receipt Date: 20160523
  Transmission Date: 20160815
  Serious: Yes (Hospitalization)
  Sender: FDA-Public Use
  Company Number: PHHY2016US068523

PATIENT
  Age: 53 Year
  Sex: Male

DRUGS (7)
  1. LORAZEPAM. [Suspect]
     Active Substance: LORAZEPAM
     Indication: SEDATIVE THERAPY
     Dosage: 3 MG/H
     Route: 041
  2. OSELTAMIVIR [Concomitant]
     Active Substance: OSELTAMIVIR
     Indication: H1N1 INFLUENZA
     Dosage: 75 MG, BID
     Route: 065
  3. HYDROMORPHONE [Suspect]
     Active Substance: HYDROMORPHONE
     Indication: SEDATIVE THERAPY
     Dosage: 1 MG/H, UNK
     Route: 041
  4. LORAZEPAM. [Suspect]
     Active Substance: LORAZEPAM
     Indication: ANALGESIC THERAPY
     Dosage: 8 MG/H, UNK
     Route: 041
  5. HYDROMORPHONE [Suspect]
     Active Substance: HYDROMORPHONE
     Indication: ANALGESIC THERAPY
     Dosage: 8 MG/H, UNK
     Route: 041
  6. HYDROMORPHONE [Suspect]
     Active Substance: HYDROMORPHONE
     Dosage: 6 MG/H, UNK
     Route: 041
  7. NOREPINEPHRINE [Concomitant]
     Active Substance: NOREPINEPHRINE\NOREPINEPHRINE BITARTRATE
     Indication: PRODUCT USED FOR UNKNOWN INDICATION
     Dosage: 35 UNK, UNK
     Route: 065

REACTIONS (2)
  - Hypoxia [Recovering/Resolving]
  - Agitation [Recovering/Resolving]
